FAERS Safety Report 23984247 (Version 2)
Quarter: 2024Q3

REPORT INFORMATION
  Report Type: Report from Study
  Country: NL (occurrence: NL)
  Receive Date: 20240618
  Receipt Date: 20240705
  Transmission Date: 20241017
  Serious: Yes (Hospitalization)
  Sender: RECORDATI
  Company Number: NL-ORPHANEU-2024004370

PATIENT

DRUGS (2)
  1. SIGNIFOR LAR [Suspect]
     Active Substance: PASIREOTIDE PAMOATE
     Indication: Acromegaly
     Dosage: 60 MILLIGRAM, EVERY 3 WEEKS (1.00 X PER 3 WEEK)
     Route: 030
     Dates: start: 20151013
  2. SIGNIFOR LAR [Suspect]
     Active Substance: PASIREOTIDE PAMOATE
     Dosage: 60 MILLIGRAM, EVERY 3 WEEKS (1.00 X PER 3 WEEK)
     Route: 030
     Dates: start: 20151013

REACTIONS (2)
  - Post procedural infection [Unknown]
  - Off label use [Recovered/Resolved]

NARRATIVE: CASE EVENT DATE: 20151013
